FAERS Safety Report 15671210 (Version 1)
Quarter: 2018Q4

REPORT INFORMATION
  Report Type: Spontaneous
  Country: US (occurrence: US)
  Receive Date: 20181129
  Receipt Date: 20181129
  Transmission Date: 20190205
  Serious: No
  Sender: FDA-Public Use
  Company Number: US-TEVA-2018-US-979403

PATIENT
  Age: 62 Year
  Sex: Female

DRUGS (1)
  1. MORPHINE ACTAVIS [Suspect]
     Active Substance: MORPHINE
     Route: 065

REACTIONS (4)
  - Nausea [Unknown]
  - Vision blurred [Unknown]
  - Dyspepsia [Unknown]
  - Headache [Unknown]
